FAERS Safety Report 7865959-9 (Version None)
Quarter: 2011Q4

REPORT INFORMATION
  Report Type: 
  Country: None (occurrence: None)
  Receive Date: 20111028
  Receipt Date: 20110328
  Transmission Date: 20120403
  Serious: No
  Sender: FDA-Public Use
  Company Number: US-GLAXOSMITHKLINE-A0920300A

PATIENT
  Age: 68 Year
  Sex: Male

DRUGS (10)
  1. ALBUTEROL [Concomitant]
  2. NEXIUM [Concomitant]
  3. NIASPAN [Concomitant]
  4. COREG [Concomitant]
  5. AGGRENOX [Concomitant]
  6. AMARYL [Concomitant]
  7. CRESTOR [Concomitant]
  8. LASIX [Concomitant]
  9. ADVAIR DISKUS 100/50 [Suspect]
     Indication: ASTHMA
     Dosage: 1PUFF TWICE PER DAY
     Route: 055
     Dates: start: 20110301, end: 20110325
  10. ADVAIR DISKUS 100/50 [Suspect]
     Dosage: 1PUFF FOUR TIMES PER DAY
     Route: 055
     Dates: start: 20110326

REACTIONS (9)
  - GAIT DISTURBANCE [None]
  - HEART RATE INCREASED [None]
  - ANXIETY [None]
  - OVERDOSE [None]
  - NAUSEA [None]
  - HEADACHE [None]
  - DIZZINESS [None]
  - DYSPNOEA [None]
  - BLOOD PRESSURE FLUCTUATION [None]
